FAERS Safety Report 6093787-6 (Version None)
Quarter: 2009Q1

REPORT INFORMATION
  Report Type: 
  Country: None (occurrence: None)
  Receive Date: 20090223
  Receipt Date: 20090223
  Transmission Date: 20090719
  Serious: Yes (Life-Threatening, Hospitalization)
  Sender: FDA-Public Use
  Company Number: None

PATIENT
  Age: 50 Year
  Sex: Male
  Weight: 102.0593 kg

DRUGS (1)
  1. CHANTIX [Suspect]
     Indication: PANCREATITIS ACUTE
     Dosage: 1 MG X2 PO
     Route: 048
     Dates: start: 20081115, end: 20081119

REACTIONS (3)
  - CALCINOSIS [None]
  - PANCREATIC DISORDER [None]
  - PANCREATITIS ACUTE [None]
